FAERS Safety Report 19457760 (Version 4)
Quarter: 2022Q1

REPORT INFORMATION
  Report Type: Spontaneous
  Country: US (occurrence: US)
  Receive Date: 20210624
  Receipt Date: 20220310
  Transmission Date: 20220423
  Serious: Yes (Hospitalization, Other)
  Sender: FDA-Public Use
  Company Number: US-PFIZER INC-2021716170

PATIENT
  Age: 63 Year
  Sex: Female

DRUGS (1)
  1. ALPRAZOLAM [Suspect]
     Active Substance: ALPRAZOLAM
     Dosage: UNK

REACTIONS (23)
  - Dyspnoea [Unknown]
  - Coeliac disease [Unknown]
  - Stress [Unknown]
  - Loss of consciousness [Unknown]
  - Rib fracture [Unknown]
  - Fall [Unknown]
  - Multiple fractures [Unknown]
  - Dehydration [Not Recovered/Not Resolved]
  - Gastrointestinal disorder [Unknown]
  - Allergic reaction to excipient [Unknown]
  - Urticaria [Unknown]
  - Diarrhoea [Unknown]
  - Skin burning sensation [Unknown]
  - Illness [Unknown]
  - Confusional state [Unknown]
  - Amnesia [Unknown]
  - Dry mouth [Unknown]
  - Peripheral swelling [Unknown]
  - Blister [Unknown]
  - Intentional product misuse [Unknown]
  - Mental disorder [Unknown]
  - Malaise [Unknown]
  - Vomiting [Unknown]
